FAERS Safety Report 7509290-X (Version None)
Quarter: 2011Q2

REPORT INFORMATION
  Report Type: 
  Country: None (occurrence: None)
  Receive Date: 20110527
  Receipt Date: 20110520
  Transmission Date: 20111010
  Serious: Yes (Hospitalization, Other)
  Sender: FDA-Public Use
  Company Number: US-ROCHE-763826

PATIENT
  Sex: Female

DRUGS (7)
  1. GEODON [Suspect]
     Route: 065
  2. RIBAVIRIN [Suspect]
     Dosage: DAILY DIVIDED DOSES
     Route: 048
  3. LIDODERM [Concomitant]
  4. XANAX [Concomitant]
  5. MORPHINE [Concomitant]
     Indication: PAIN
  6. PEGASYS [Suspect]
     Indication: HEPATITIS C
     Dosage: PRE-FILLED SYRINGE
     Route: 058
     Dates: start: 20110208
  7. RIBAVIRIN [Suspect]
     Indication: HEPATITIS C
     Dosage: DIVIDED DOSES ( 2 IN AM 3 IN PM)
     Route: 048
     Dates: start: 20110208

REACTIONS (13)
  - CONSTIPATION [None]
  - BLOOD POTASSIUM DECREASED [None]
  - FATIGUE [None]
  - DIZZINESS [None]
  - VISUAL IMPAIRMENT [None]
  - INSOMNIA [None]
  - INCORRECT DOSE ADMINISTERED [None]
  - DECREASED APPETITE [None]
  - WEIGHT DECREASED [None]
  - LETHARGY [None]
  - HYPOTENSION [None]
  - PAIN IN EXTREMITY [None]
  - NAUSEA [None]
